FAERS Safety Report 8171481-5 (Version None)
Quarter: 2012Q1

REPORT INFORMATION
  Report Type: 
  Country: None (occurrence: None)
  Receive Date: 20120104
  Receipt Date: 20111122
  Transmission Date: 20120608
  Serious: No
  Sender: FDA-Public Use
  Company Number: 2011HGS-002858

PATIENT
  Age: 58 Year
  Sex: Female
  Weight: 80.7403 kg

DRUGS (13)
  1. PLAQUENIL (HYDROXYCHLOROQUINE SULFATE)(HYDROXYCHLOROQUINE SULFATE) [Concomitant]
  2. PRAVASTATIN [Concomitant]
  3. LUMIGAN (BIMATOPROST) (BIMATOPROST) [Concomitant]
  4. ALLEGRA (FEXOFENADINE HYDROCHLORIDE) (FEXOFENADINE HYDROCHLORIDE) [Concomitant]
  5. AMLODIPINE [Concomitant]
  6. CELEBREX [Concomitant]
  7. DIAZIDE (GLICLAZIDE) (GLICLAZIDE) [Concomitant]
  8. SINGULAIR (MONTELUKAST) (MONTELUKAST) [Concomitant]
  9. BENLYSTA [Suspect]
     Indication: SYSTEMIC LUPUS ERYTHEMATOSUS
     Dosage: 1 IN 28 D, INTRAVENOUS DRIP
     Route: 041
     Dates: start: 20110718
  10. PREVACID (LANSOPRAZOLE) (LANSOPRAZOLE) [Concomitant]
  11. DIAZEPAM [Concomitant]
  12. POTASSIUM (POTASSIUM)(POTASSIUM) [Concomitant]
  13. CALCIUM (CALCIUM) (CALCIUM) [Concomitant]

REACTIONS (2)
  - COUGH [None]
  - NASOPHARYNGITIS [None]
